FAERS Safety Report 9447576 (Version 1)
Quarter: 2013Q3

REPORT INFORMATION
  Report Type: Spontaneous
  Country: JP (occurrence: JP)
  Receive Date: 20130808
  Receipt Date: 20130808
  Transmission Date: 20140515
  Serious: Yes (Hospitalization, Other)
  Sender: FDA-Public Use
  Company Number: JP-009507513-1308JPN002331

PATIENT
  Age: 95 Year
  Sex: Male

DRUGS (1)
  1. STROMECTOL [Suspect]
     Dosage: DAILY DOSAGE UNKNOWN
     Route: 048
     Dates: start: 2012

REACTIONS (7)
  - Vocal cord paralysis [Not Recovered/Not Resolved]
  - Dysphagia [Not Recovered/Not Resolved]
  - Purpura [Unknown]
  - Gait disturbance [Unknown]
  - Dysstasia [Unknown]
  - Faeces pale [Unknown]
  - Yellow skin [Unknown]
